FAERS Safety Report 6315653-0 (Version None)
Quarter: 2009Q3

REPORT INFORMATION
  Report Type: 
  Country: None (occurrence: None)
  Receive Date: 20090818
  Receipt Date: 20090810
  Transmission Date: 20100115
  Serious: No
  Sender: FDA-Public Use
  Company Number: 230465K09BRA

PATIENT
  Age: 22 Year
  Sex: Female

DRUGS (4)
  1. REBIF [Suspect]
     Indication: RELAPSING-REMITTING MULTIPLE SCLEROSIS
     Dosage: 44 MCG, 3 IN 1 WEEKS ; 22 MCG, 3 IN 1 WEEKS
     Dates: start: 20081201, end: 20090301
  2. REBIF [Suspect]
     Indication: RELAPSING-REMITTING MULTIPLE SCLEROSIS
     Dosage: 44 MCG, 3 IN 1 WEEKS ; 22 MCG, 3 IN 1 WEEKS
     Dates: start: 20090301
  3. ALL OTHER THERAPEUTIC PRODUCTS [Concomitant]
  4. TYLENOL [Concomitant]

REACTIONS (3)
  - MULTIPLE SCLEROSIS RELAPSE [None]
  - SENSORY LOSS [None]
  - VISION BLURRED [None]
